FAERS Safety Report 7054389-8 (Version None)
Quarter: 2010Q4

REPORT INFORMATION
  Report Type: 
  Country: None (occurrence: None)
  Receive Date: 20101015
  Receipt Date: 20100929
  Transmission Date: 20110411
  Serious: Yes (Death, Hospitalization)
  Sender: FDA-Public Use
  Company Number: 2010004232

PATIENT
  Age: 72 Year
  Sex: Male

DRUGS (6)
  1. TARCEVA [Suspect]
     Indication: LUNG ADENOCARCINOMA
     Dosage: (150 MG, QD), ORAL
     Route: 048
     Dates: start: 20071208
  2. GEFITINIB [Suspect]
     Indication: LUNG ADENOCARCINOMA
     Dosage: (250 MG, QD), ORAL
     Route: 048
     Dates: end: 20071208
  3. LACTOBACILLUS [Concomitant]
  4. TRAMADOL HCL [Concomitant]
  5. DOMPERIDONE (DOMPERIDONE) [Concomitant]
  6. TETRACYCLINE [Concomitant]

REACTIONS (18)
  - BLOOD CREATININE INCREASED [None]
  - BLOOD PRESSURE SYSTOLIC INCREASED [None]
  - BLOOD UREA INCREASED [None]
  - CARDIO-RESPIRATORY ARREST [None]
  - CYANOSIS [None]
  - DIZZINESS [None]
  - EMPYEMA [None]
  - HAEMOGLOBIN DECREASED [None]
  - HEADACHE [None]
  - HEART RATE INCREASED [None]
  - INJECTION SITE HAEMATOMA [None]
  - INJECTION SITE HAEMORRHAGE [None]
  - PRURITUS [None]
  - PURPURA [None]
  - RESPIRATORY RATE INCREASED [None]
  - THROMBOCYTOPENIA [None]
  - VISION BLURRED [None]
  - WHITE BLOOD CELL COUNT INCREASED [None]
